FAERS Safety Report 7084252-8 (Version None)
Quarter: 2010Q4

REPORT INFORMATION
  Report Type: 
  Country: None (occurrence: None)
  Receive Date: 20101104
  Receipt Date: 20101102
  Transmission Date: 20110411
  Serious: Yes (Hospitalization, Congenital Anomaly, Other)
  Sender: FDA-Public Use
  Company Number: US-PFIZER INC-2010092577

PATIENT
  Sex: Female
  Weight: 4.6 kg

DRUGS (3)
  1. ZOLOFT [Suspect]
     Dosage: UNK
     Route: 064
  2. METFORMIN HCL [Suspect]
     Indication: GESTATIONAL DIABETES
     Dosage: 500 MG, 3X/DAY
  3. METFORMIN HCL [Suspect]
     Indication: ABORTION SPONTANEOUS

REACTIONS (2)
  - COARCTATION OF THE AORTA [None]
  - DRUG EXPOSURE DURING PREGNANCY [None]
